FAERS Safety Report 16926960 (Version 1)
Quarter: 2019Q4

REPORT INFORMATION
  Report Type: Spontaneous
  Country: ES (occurrence: ES)
  Receive Date: 20191016
  Receipt Date: 20191016
  Transmission Date: 20200122
  Serious: Yes (Hospitalization)
  Sender: FDA-Public Use
  Company Number: ES-EISAI MEDICAL RESEARCH-EC-2019-063576

PATIENT
  Age: 10 Year
  Sex: Female

DRUGS (1)
  1. FYCOMPA [Suspect]
     Active Substance: PERAMPANEL
     Indication: PRODUCT USED FOR UNKNOWN INDICATION
     Dosage: PATIENT TOOK AT LEAST FOUR TABLETS (DOSAGE UNKNOWN).
     Route: 048

REACTIONS (2)
  - Accidental exposure to product [Recovered/Resolved]
  - Somnolence [Recovered/Resolved]
